FAERS Safety Report 10376772 (Version 1)
Quarter: 2014Q3

REPORT INFORMATION
  Report Type: Spontaneous
  Country: US (occurrence: US)
  Receive Date: 20140811
  Receipt Date: 20140811
  Transmission Date: 20150326
  Serious: Yes (Hospitalization, Other)
  Sender: FDA-Public Use
  Company Number: US-ABBVIE-14P-163-1268998-00

PATIENT
  Age: 53 Year
  Sex: Male

DRUGS (1)
  1. ANDROGEL [Suspect]
     Active Substance: TESTOSTERONE
     Indication: BLOOD TESTOSTERONE DECREASED
     Dates: start: 20100625, end: 20121210

REACTIONS (10)
  - Disability [Unknown]
  - Pain [Unknown]
  - Economic problem [Unknown]
  - Balance disorder [Unknown]
  - Impaired work ability [Unknown]
  - Coronary artery stenosis [Unknown]
  - Injury [Unknown]
  - Emotional distress [Unknown]
  - Acute myocardial infarction [Unknown]
  - Unevaluable event [Unknown]

NARRATIVE: CASE EVENT DATE: 20120803
